FAERS Safety Report 11835016 (Version 15)
Quarter: 2018Q3

REPORT INFORMATION
  Report Type: Report from Study
  Country: GB (occurrence: GB)
  Receive Date: 20151215
  Receipt Date: 20180703
  Transmission Date: 20181010
  Serious: Yes (Death, Hospitalization, Other)
  Sender: FDA-Public Use
  Company Number: GB-ROCHE-1676918

PATIENT
  Age: 73 Year
  Sex: Male

DRUGS (2)
  1. ESBRIET [Suspect]
     Active Substance: PIRFENIDONE
     Route: 048
     Dates: start: 201311
  2. ESBRIET [Suspect]
     Active Substance: PIRFENIDONE
     Indication: IDIOPATHIC PULMONARY FIBROSIS
     Route: 048
     Dates: start: 20131007

REACTIONS (38)
  - Candida infection [Unknown]
  - Musculoskeletal stiffness [Not Recovered/Not Resolved]
  - Pruritus [Unknown]
  - Contusion [Unknown]
  - Fungal infection [Unknown]
  - Nausea [Unknown]
  - Decreased appetite [Not Recovered/Not Resolved]
  - Fatigue [Unknown]
  - Gait disturbance [Unknown]
  - Gait inability [Unknown]
  - Productive cough [Unknown]
  - Constipation [Not Recovered/Not Resolved]
  - Malaise [Recovering/Resolving]
  - Ill-defined disorder [Unknown]
  - Pyrexia [Unknown]
  - Fluid overload [Unknown]
  - Lower respiratory tract infection [Unknown]
  - Cough [Unknown]
  - Fluid retention [Unknown]
  - Skin discolouration [Unknown]
  - Muscular weakness [Unknown]
  - Oxygen saturation decreased [Unknown]
  - Chills [Unknown]
  - Dyspnoea [Recovering/Resolving]
  - Oedema peripheral [Unknown]
  - Lower respiratory tract infection [Recovered/Resolved]
  - Hypotension [Unknown]
  - Total lung capacity decreased [Unknown]
  - Cardiac output decreased [Unknown]
  - Joint stiffness [Not Recovered/Not Resolved]
  - Arthritis [Unknown]
  - Death [Fatal]
  - Depression [Unknown]
  - Arthralgia [Not Recovered/Not Resolved]
  - Nasopharyngitis [Not Recovered/Not Resolved]
  - Nasopharyngitis [Not Recovered/Not Resolved]
  - Limb discomfort [Recovering/Resolving]
  - Balance disorder [Unknown]

NARRATIVE: CASE EVENT DATE: 20151208
